FAERS Safety Report 8196947-3 (Version None)
Quarter: 2012Q1

REPORT INFORMATION
  Report Type: 
  Country: None (occurrence: None)
  Receive Date: 20120309
  Receipt Date: 20120301
  Transmission Date: 20120608
  Serious: Yes (Other)
  Sender: FDA-Public Use
  Company Number: JP-JNJFOC-20120201637

PATIENT
  Sex: Female

DRUGS (29)
  1. ACTONEL [Concomitant]
     Indication: OSTEOPOROSIS
     Route: 048
     Dates: start: 20100615
  2. CELECOXIB [Concomitant]
     Indication: PAIN
     Route: 048
     Dates: start: 20100615
  3. ROHYPNOL [Concomitant]
     Indication: INSOMNIA
     Route: 048
     Dates: start: 20100615
  4. ZOLOFT [Concomitant]
     Indication: DEPRESSION
     Route: 048
     Dates: start: 20100615
  5. LEVOTHYROXINE SODIUM [Concomitant]
     Indication: HYPOTHYROIDISM
     Route: 048
     Dates: start: 20100615
  6. FENTANYL-100 [Suspect]
     Dosage: 12.5 UG/HR PER 3 DAY
     Route: 062
     Dates: start: 20100720
  7. MORPHINE [Suspect]
     Route: 048
     Dates: start: 20110109, end: 20110115
  8. FAMOTIDINE [Concomitant]
     Indication: PROPHYLAXIS
     Route: 048
     Dates: start: 20100615
  9. LYRICA [Concomitant]
     Indication: PAIN
     Route: 048
     Dates: start: 20101220, end: 20101227
  10. FENTANYL-100 [Suspect]
     Dosage: 25 UG/HR PER 2 DAY
     Route: 062
     Dates: start: 20100715, end: 20100717
  11. FENOFIBRATE [Concomitant]
     Route: 048
     Dates: start: 20100615
  12. LYRICA [Concomitant]
     Route: 048
     Dates: start: 20101228
  13. MEIACT [Concomitant]
     Indication: CYSTITIS
     Route: 048
     Dates: start: 20110603, end: 20110606
  14. FENTANYL-100 [Suspect]
     Indication: PAIN
     Dosage: 12.5 MCG/HR PER 3 DAY
     Route: 062
     Dates: start: 20101015
  15. AN UNKNOWN MEDICATION [Concomitant]
     Indication: PERIPHERAL VASCULAR DISORDER
     Route: 048
     Dates: start: 20091001
  16. METHYCOBAL [Concomitant]
     Indication: PAIN
     Route: 048
     Dates: start: 20100615
  17. LYRICA [Concomitant]
     Route: 048
     Dates: start: 20101125, end: 20101219
  18. SIMVASTATIN [Concomitant]
     Indication: HYPERLIPIDAEMIA
     Route: 048
     Dates: start: 20100615
  19. MAGNESIUM OXIDE [Concomitant]
     Indication: CONSTIPATION
     Route: 048
     Dates: start: 20100617, end: 20100901
  20. MAGNESIUM OXIDE [Concomitant]
     Route: 048
     Dates: start: 20100528, end: 20100616
  21. JUVELAN [Concomitant]
     Indication: HYPERLIPIDAEMIA
     Route: 048
     Dates: start: 20100615
  22. MORPHINE [Suspect]
     Indication: PAIN
     Route: 048
     Dates: start: 20100715, end: 20100717
  23. MORPHINE [Suspect]
     Route: 048
     Dates: start: 20100718, end: 20110112
  24. MORPHINE [Suspect]
     Route: 048
     Dates: start: 20110709, end: 20110715
  25. NEUROTROPIN [Concomitant]
     Indication: PAIN
     Route: 048
     Dates: start: 20090903
  26. MAGNESIUM OXIDE [Concomitant]
     Route: 048
     Dates: start: 20100902
  27. ALPRAZOLAM [Concomitant]
     Route: 048
     Dates: start: 20100615, end: 20111019
  28. LEVOTOMIN [Concomitant]
     Indication: DEPRESSION
     Route: 048
     Dates: start: 20100615
  29. EBRANTIL [Concomitant]
     Indication: CYSTITIS
     Route: 048
     Dates: start: 20110607, end: 20110719

REACTIONS (2)
  - DIZZINESS [None]
  - CYSTITIS [None]
